FAERS Safety Report 8416739-7 (Version None)
Quarter: 2012Q2

REPORT INFORMATION
  Report Type: 
  Country: None (occurrence: None)
  Receive Date: 20120606
  Receipt Date: 20120530
  Transmission Date: 20120825
  Serious: Yes (Other)
  Sender: FDA-Public Use
  Company Number: VE-PFIZER INC-2012132018

PATIENT
  Sex: Female

DRUGS (2)
  1. LYRICA [Suspect]
  2. LIPITOR [Concomitant]
     Dosage: 20 MG, UNK

REACTIONS (2)
  - INTESTINAL OBSTRUCTION [None]
  - DRY MOUTH [None]
